FAERS Safety Report 15689861 (Version 1)
Quarter: 2018Q4

REPORT INFORMATION
  Report Type: Spontaneous
  Country: GB (occurrence: GB)
  Receive Date: 20181205
  Receipt Date: 20181205
  Transmission Date: 20190205
  Serious: Yes (Disabling)
  Sender: FDA-Public Use
  Company Number: None

PATIENT
  Age: 47 Year
  Sex: Female

DRUGS (1)
  1. CIPROFLOXACIN. [Suspect]
     Active Substance: CIPROFLOXACIN
     Indication: PYELONEPHRITIS
     Dosage: ?          QUANTITY:1 TABLET(S);?
     Route: 048
     Dates: start: 20180813, end: 20180817

REACTIONS (7)
  - Chest pain [None]
  - Drug ineffective [None]
  - Tendon injury [None]
  - Lower respiratory tract infection [None]
  - Tendon pain [None]
  - Pyelonephritis [None]
  - Malaise [None]

NARRATIVE: CASE EVENT DATE: 20180813
